FAERS Safety Report 14999806 (Version 1)
Quarter: 2018Q2

REPORT INFORMATION
  Report Type: Spontaneous
  Country: US (occurrence: US)
  Receive Date: 20180521
  Receipt Date: 20180521
  Transmission Date: 20180711
  Serious: Yes (Other)
  Sender: FDA-Public Use
  Company Number: None

PATIENT
  Sex: Female

DRUGS (18)
  1. CALCITRIOL. [Concomitant]
     Active Substance: CALCITRIOL
  2. SODIUM POWBICARBON [Concomitant]
  3. LASIX [Concomitant]
     Active Substance: FUROSEMIDE
  4. TACROLIMUS. [Suspect]
     Active Substance: TACROLIMUS
     Indication: LUNG TRANSPLANT
     Route: 048
     Dates: start: 20110315
  5. TACROLIMUS. [Suspect]
     Active Substance: TACROLIMUS
     Indication: LUNG TRANSPLANT
     Dosage: 1.5 MG QPM ALONG WITH 1MG ORAL
     Route: 048
     Dates: start: 20100504
  6. MAGNESIUM [Concomitant]
     Active Substance: MAGNESIUM
  7. LEVOTHYROXIN [Concomitant]
     Active Substance: LEVOTHYROXINE
  8. PAXIL [Concomitant]
     Active Substance: PAROXETINE HYDROCHLORIDE
  9. PRAVASTATIN. [Concomitant]
     Active Substance: PRAVASTATIN
  10. ZORTRESS [Concomitant]
     Active Substance: EVEROLIMUS
  11. FISH OIL [Concomitant]
     Active Substance: FISH OIL
  12. PANTOPRAZOLE [Concomitant]
     Active Substance: PANTOPRAZOLE
  13. PAROXETINE. [Concomitant]
     Active Substance: PAROXETINE
  14. VITAMIN D3 [Concomitant]
     Active Substance: CHOLECALCIFEROL
  15. PREDNISONE. [Concomitant]
     Active Substance: PREDNISONE
  16. SYNTHROID [Concomitant]
     Active Substance: LEVOTHYROXINE SODIUM
  17. BACTRIM [Concomitant]
     Active Substance: SULFAMETHOXAZOLE\TRIMETHOPRIM
  18. METOPROL TAR [Concomitant]

REACTIONS (1)
  - Renal failure [None]
